FAERS Safety Report 4905761-0 (Version None)
Quarter: 2006Q1

REPORT INFORMATION
  Report Type: 
  Country: None (occurrence: None)
  Receive Date: 20060208
  Receipt Date: 20060206
  Transmission Date: 20060701
  Serious: Yes (Hospitalization)
  Sender: FDA-Public Use
  Company Number: CA-MERCK-0602CAN00023

PATIENT
  Age: 81 Year
  Sex: Female

DRUGS (2)
  1. FOSAMAX [Suspect]
     Route: 048
     Dates: start: 19960101, end: 20020101
  2. FOSAMAX [Suspect]
     Route: 048
     Dates: start: 20020101

REACTIONS (5)
  - ARTHRALGIA [None]
  - BALANCE DISORDER [None]
  - FALL [None]
  - SPINAL FRACTURE [None]
  - VERTIGO [None]
